FAERS Safety Report 5045944-5 (Version None)
Quarter: 2006Q2

REPORT INFORMATION
  Report Type: 
  Country: None (occurrence: None)
  Receive Date: 20060601
  Receipt Date: 20060319
  Transmission Date: 20061013
  Serious: No
  Sender: FDA-Public Use
  Company Number: 2006PV010348

PATIENT
  Age: 54 Year
  Sex: Female
  Weight: 134.7183 kg

DRUGS (7)
  1. BYETTA [Suspect]
     Indication: DIABETES MELLITUS NON-INSULIN-DEPENDENT
     Dosage: SEE IMAGE
     Route: 058
     Dates: start: 20051213, end: 20060314
  2. BYETTA [Suspect]
     Indication: DIABETES MELLITUS NON-INSULIN-DEPENDENT
     Dosage: SEE IMAGE
     Route: 058
     Dates: start: 20060315
  3. ZOFRAN [Concomitant]
  4. ACTOS /USA/ [Concomitant]
  5. AMARYL [Concomitant]
  6. LIPITOR [Concomitant]
  7. COMPAZINE [Concomitant]

REACTIONS (3)
  - INJECTION SITE PAIN [None]
  - NAUSEA [None]
  - WEIGHT DECREASED [None]
